FAERS Safety Report 11994778 (Version 8)
Quarter: 2016Q2

REPORT INFORMATION
  Report Type: Report from Study
  Country: JP (occurrence: JP)
  Receive Date: 20160203
  Receipt Date: 20160613
  Transmission Date: 20160815
  Serious: Yes (Death, Hospitalization)
  Sender: FDA-Public Use
  Company Number: JP-PFIZER INC-2016049925

PATIENT
  Age: 86 Year
  Sex: Female
  Weight: 40 kg

DRUGS (5)
  1. RHEUMATREX [Concomitant]
     Active Substance: METHOTREXATE SODIUM
     Dosage: 4 MG, WEEKLY
     Dates: end: 20160120
  2. XELJANZ [Suspect]
     Active Substance: TOFACITINIB CITRATE
     Indication: RHEUMATOID ARTHRITIS
     Dosage: 5 MG, 1X/DAY
     Route: 048
     Dates: start: 20150805, end: 20160125
  3. AZULFIDINE [Concomitant]
     Active Substance: SULFASALAZINE
     Dosage: 1000 MG, DAILY
     Dates: start: 2011, end: 20160126
  4. RIMATIL [Concomitant]
     Active Substance: BUCILLAMINE
     Dosage: UNK
     Dates: start: 201108, end: 20160126
  5. BACTAR [Concomitant]
     Active Substance: SULFAMERAZINE\TRIMETHOPRIM
     Indication: ANTIFUNGAL PROPHYLAXIS
     Dosage: UNK
     Route: 048
     Dates: start: 201209, end: 20160126

REACTIONS (5)
  - Respiratory failure [Fatal]
  - Pancytopenia [Fatal]
  - Interstitial lung disease [Fatal]
  - Depressed level of consciousness [Fatal]
  - Renal failure [Fatal]

NARRATIVE: CASE EVENT DATE: 20160125
